FAERS Safety Report 21634969 (Version 1)
Quarter: 2022Q4

REPORT INFORMATION
  Report Type: Spontaneous
  Country: US (occurrence: None)
  Receive Date: 20221122
  Receipt Date: 20221122
  Transmission Date: 20230113
  Serious: No
  Sender: FDA-Public Use
  Company Number: None

PATIENT
  Age: 76 Year
  Sex: Female
  Weight: 87.77 kg

DRUGS (16)
  1. CAPECITABINE [Suspect]
     Active Substance: CAPECITABINE
     Indication: Neoplasm malignant
     Dosage: 1500MG TWICE A DAY ORAL?
     Route: 048
  2. AMBIEN [Concomitant]
     Active Substance: ZOLPIDEM TARTRATE
  3. CALCIUM\MAGNESIUM [Concomitant]
     Active Substance: CALCIUM\MAGNESIUM
  4. FAMOTIDINE [Concomitant]
     Active Substance: FAMOTIDINE
  5. GABAPENTIN [Concomitant]
     Active Substance: GABAPENTIN
  6. lidocaine- prilocaine external [Concomitant]
  7. LOSARTAN [Concomitant]
     Active Substance: LOSARTAN
  8. POTASSIUM [Concomitant]
     Active Substance: POTASSIUM
  9. LYRICA [Concomitant]
     Active Substance: PREGABALIN
  10. METAMUCIL [Concomitant]
     Active Substance: PLANTAGO SEED
  11. metaformin [Concomitant]
  12. VITAMINS [Concomitant]
     Active Substance: VITAMINS
  13. ONDANSETRON [Concomitant]
     Active Substance: ONDANSETRON
  14. SENOKOT [Concomitant]
     Active Substance: SENNOSIDES
  15. SYNTHROID [Concomitant]
     Active Substance: LEVOTHYROXINE SODIUM
  16. VITAMIN D3 [Concomitant]
     Active Substance: CHOLECALCIFEROL

REACTIONS (1)
  - Tumour marker increased [None]
